FAERS Safety Report 11076237 (Version 2)
Quarter: 2015Q3

REPORT INFORMATION
  Report Type: Spontaneous
  Country: US (occurrence: US)
  Receive Date: 20150429
  Receipt Date: 20150824
  Transmission Date: 20151125
  Serious: No
  Sender: FDA-Public Use
  Company Number: US-PFIZER INC-2015131809

PATIENT
  Sex: Female

DRUGS (1)
  1. NADOLOL. [Suspect]
     Active Substance: NADOLOL
     Dosage: 120 MG, DAILY (ONE AND A HALF TABLET DAILY)

REACTIONS (2)
  - Malaise [Unknown]
  - Balance disorder [Unknown]
